FAERS Safety Report 22001214 (Version 3)
Quarter: 2023Q2

REPORT INFORMATION
  Report Type: Spontaneous
  Country: US (occurrence: US)
  Receive Date: 20230216
  Receipt Date: 20230501
  Transmission Date: 20230722
  Serious: Yes (Hospitalization)
  Sender: FDA-Public Use
  Company Number: US-AMNEAL PHARMACEUTICALS-2023-AMRX-00101

PATIENT
  Sex: Male
  Weight: 11.882 kg

DRUGS (8)
  1. VIGABATRIN [Suspect]
     Active Substance: VIGABATRIN
     Indication: Infantile spasms
     Dosage: MIX 1 PACKET IN 10 ML OF WATER AND GIVE/TAKE 5 ML(250MG) TWICE DAILY FOR 1 WEEK
     Route: 048
  2. VIGABATRIN [Suspect]
     Active Substance: VIGABATRIN
     Dosage: MIX 1 PACKET IN 10 ML OF WATER AND GIVE/TAKE 10 ML(500MG) TWICE DAILY. DISCARD UNUSED PORTION
     Route: 048
  3. VIGABATRIN [Suspect]
     Active Substance: VIGABATRIN
     Dosage: MIX 2 PACKETS IN 20 ML OF WATER AND GIVE 15 ML (750 MG), TWO TIMES A DAY
     Route: 048
  4. VIGABATRIN [Suspect]
     Active Substance: VIGABATRIN
     Dosage: MIX 2 PACKETS IN 20 ML OF WATER AND GIVE 15 ML (750 MG), TWO TIMES A DAY
     Route: 048
  5. VIGABATRIN [Suspect]
     Active Substance: VIGABATRIN
     Dosage: 900 MG AT MORNING AND 1000 MG AT EVENING IN A DAY
     Route: 048
  6. VIMPAT [Concomitant]
     Active Substance: LACOSAMIDE
     Indication: Product used for unknown indication
     Dosage: 100 MG TABLET
     Route: 065
  7. ATROPA BELLADONNA\PHENOBARBITAL [Concomitant]
     Active Substance: ATROPA BELLADONNA\PHENOBARBITAL
     Indication: Product used for unknown indication
     Dosage: 16.20MG/5 ML
     Route: 065
  8. KEPPRA [Concomitant]
     Active Substance: LEVETIRACETAM
     Indication: Product used for unknown indication
     Dosage: 100 MG TABLET
     Route: 065

REACTIONS (4)
  - Illness [Unknown]
  - Symptom recurrence [Unknown]
  - Muscle spasms [Unknown]
  - Product use issue [Unknown]
